FAERS Safety Report 5802818-7 (Version None)
Quarter: 2008Q3

REPORT INFORMATION
  Report Type: 
  Country: None (occurrence: None)
  Receive Date: 20080708
  Receipt Date: 20080630
  Transmission Date: 20090109
  Serious: Yes (Other)
  Sender: FDA-Public Use
  Company Number: GB-ABBOTT-08P-167-0457033-00

PATIENT
  Sex: Female
  Weight: 73.5 kg

DRUGS (4)
  1. REDUCTIL [Suspect]
     Indication: WEIGHT CONTROL
     Route: 048
     Dates: start: 20071001, end: 20071201
  2. REDUCTIL [Suspect]
     Route: 048
     Dates: start: 20080328, end: 20080529
  3. DEPOPRAVEA [Concomitant]
     Indication: CONTRACEPTION
     Route: 030
     Dates: start: 20071013
  4. LANSOPRAZOLE [Concomitant]
     Indication: DRUG USE FOR UNKNOWN INDICATION

REACTIONS (1)
  - MENORRHAGIA [None]
